FAERS Safety Report 21845199 (Version 1)
Quarter: 2023Q1

REPORT INFORMATION
  Report Type: Spontaneous
  Country: US (occurrence: US)
  Receive Date: 20230110
  Receipt Date: 20230110
  Transmission Date: 20230417
  Serious: No
  Sender: FDA-Public Use
  Company Number: US-BEH-2023153949

PATIENT
  Sex: Female

DRUGS (1)
  1. HIZENTRA [Suspect]
     Active Substance: HUMAN IMMUNOGLOBULIN G
     Indication: Illness
     Dosage: 20 GRAM, QOW
     Route: 058
     Dates: start: 20220106

REACTIONS (5)
  - Swelling [Unknown]
  - Pruritus [Unknown]
  - Injection site nodule [Unknown]
  - No adverse event [Unknown]
  - Off label use [Unknown]
